FAERS Safety Report 8094815-9 (Version None)
Quarter: 2012Q1

REPORT INFORMATION
  Report Type: 
  Country: None (occurrence: None)
  Receive Date: 20120129
  Receipt Date: 20111212
  Transmission Date: 20120608
  Serious: No
  Sender: FDA-Public Use
  Company Number: US-ABBOTT-11P-163-0882585-00

PATIENT
  Age: 48 Year
  Sex: Male

DRUGS (2)
  1. UNKNOWN MEDICATION [Concomitant]
     Indication: PRODUCT USED FOR UNKNOWN INDICATION
  2. HUMIRA [Suspect]
     Indication: PSORIATIC ARTHROPATHY
     Dates: start: 20110901

REACTIONS (7)
  - HYPERHIDROSIS [None]
  - DIZZINESS [None]
  - HYPOAESTHESIA [None]
  - ANXIETY [None]
  - NAUSEA [None]
  - UNEVALUABLE EVENT [None]
  - PARAESTHESIA [None]
